FAERS Safety Report 5863232-1 (Version None)
Quarter: 2008Q3

REPORT INFORMATION
  Report Type: 
  Country: None (occurrence: None)
  Receive Date: 20080828
  Receipt Date: 20080822
  Transmission Date: 20090109
  Serious: Yes (Other)
  Sender: FDA-Public Use
  Company Number: US-ASTRAZENECA-2008UW17308

PATIENT
  Age: 45 Year
  Sex: Female

DRUGS (4)
  1. SEROQUEL [Suspect]
     Route: 048
  2. ESTROTEST [Concomitant]
     Dosage: 625/1.25
  3. XANAX [Concomitant]
     Dosage: .5
  4. IMMETREX [Concomitant]

REACTIONS (1)
  - TOURETTE'S DISORDER [None]
